FAERS Safety Report 19421300 (Version 1)
Quarter: 2021Q2

REPORT INFORMATION
  Report Type: Spontaneous
  Country: US (occurrence: US)
  Receive Date: 20210616
  Receipt Date: 20210616
  Transmission Date: 20210717
  Serious: Yes (Hospitalization, Other)
  Sender: FDA-Public Use
  Company Number: US-AUROBINDO-AUR-APL-2019-076572

PATIENT
  Age: 80 Year
  Sex: Female

DRUGS (3)
  1. FERROUS SULFATE. [Suspect]
     Active Substance: FERROUS SULFATE
     Indication: PRODUCT USED FOR UNKNOWN INDICATION
     Dosage: 300 MILLIGRAM, 3 TIMES A DAY
     Route: 065
  2. ASPIRIN. [Suspect]
     Active Substance: ASPIRIN
     Indication: PRODUCT USED FOR UNKNOWN INDICATION
     Dosage: 81 MILLIGRAM, DAILY
     Route: 065
  3. ALENDRONATE SODIUM. [Suspect]
     Active Substance: ALENDRONATE SODIUM
     Indication: PRODUCT USED FOR UNKNOWN INDICATION
     Dosage: 70 MILLIGRAM, EVERY WEEK
     Route: 065

REACTIONS (11)
  - Dysphagia [Unknown]
  - Abdominal pain upper [Unknown]
  - Haematoma [Recovered/Resolved]
  - Odynophagia [Unknown]
  - Oesophageal injury [Recovered/Resolved]
  - Vomiting [Unknown]
  - Nausea [Unknown]
  - Chest pain [Unknown]
  - Oesophageal haemorrhage [Recovered/Resolved]
  - Deep vein thrombosis [Unknown]
  - Pain [Unknown]
